FAERS Safety Report 24670032 (Version 2)
Quarter: 2024Q4

REPORT INFORMATION
  Report Type: Spontaneous
  Country: US (occurrence: US)
  Receive Date: 20241127
  Receipt Date: 20241226
  Transmission Date: 20250115
  Serious: No
  Sender: ROCHE
  Company Number: US-ROCHE-10000136978

PATIENT
  Age: 51 Year
  Sex: Male

DRUGS (3)
  1. NUTROPIN [Suspect]
     Active Substance: SOMATROPIN
     Indication: Muscle atrophy
     Route: 058
     Dates: start: 20240728
  2. NUTROPIN [Suspect]
     Active Substance: SOMATROPIN
     Indication: Ejection fraction decreased
  3. NUTROPIN [Suspect]
     Active Substance: SOMATROPIN
     Indication: Peripheral nerve injury

REACTIONS (6)
  - Device malfunction [Unknown]
  - Device mechanical issue [Unknown]
  - Device issue [Unknown]
  - Product dose omission issue [Unknown]
  - Off label use [Unknown]
  - No adverse event [Unknown]

NARRATIVE: CASE EVENT DATE: 20241119
